FAERS Safety Report 7584953-9 (Version None)
Quarter: 2011Q2

REPORT INFORMATION
  Report Type: 
  Country: None (occurrence: None)
  Receive Date: 20110630
  Receipt Date: 20110627
  Transmission Date: 20111010
  Serious: Yes (Other)
  Sender: FDA-Public Use
  Company Number: GB-PFIZER INC-2011143242

PATIENT
  Age: 38 Year
  Sex: Male

DRUGS (2)
  1. ZEMPLAR [Suspect]
     Dosage: 2 UG, 3X/WEEK
  2. RAMIPRIL [Suspect]
     Dosage: UNK

REACTIONS (3)
  - BLOOD POTASSIUM INCREASED [None]
  - FATIGUE [None]
  - LETHARGY [None]
